FAERS Safety Report 12414965 (Version 1)
Quarter: 2016Q2

REPORT INFORMATION
  Report Type: Report from Study
  Country: US (occurrence: US)
  Receive Date: 20160530
  Receipt Date: 20160530
  Transmission Date: 20160815
  Serious: Yes (Hospitalization)
  Sender: FDA-Public Use
  Company Number: US-AMGEN-USASL2016067869

PATIENT
  Age: 53 Year
  Sex: Female

DRUGS (3)
  1. ACTEMRA [Concomitant]
     Active Substance: TOCILIZUMAB
     Dosage: UNK
  2. ORENCIA [Concomitant]
     Active Substance: ABATACEPT
     Dosage: UNK
  3. ENBREL [Suspect]
     Active Substance: ETANERCEPT
     Indication: PRODUCT USED FOR UNKNOWN INDICATION
     Dosage: UNK UNK, UNK
     Route: 065

REACTIONS (15)
  - Bronchitis chronic [Unknown]
  - Dysstasia [Not Recovered/Not Resolved]
  - Contusion [Unknown]
  - Peripheral swelling [Unknown]
  - Insomnia [Unknown]
  - Pain [Unknown]
  - Movement disorder [Not Recovered/Not Resolved]
  - Rash [Unknown]
  - Dyspnoea [Unknown]
  - Musculoskeletal disorder [Unknown]
  - Skin discolouration [Unknown]
  - Blister [Unknown]
  - Drug ineffective [Unknown]
  - Discomfort [Unknown]
  - Gait disturbance [Not Recovered/Not Resolved]
